FAERS Safety Report 5659194-2 (Version None)
Quarter: 2008Q1

REPORT INFORMATION
  Report Type: 
  Country: None (occurrence: None)
  Receive Date: 20080311
  Receipt Date: 20071017
  Transmission Date: 20080703
  Serious: No
  Sender: FDA-Public Use
  Company Number: US-BAYER-200711827BCC

PATIENT
  Age: 35 Year
  Sex: Female
  Weight: 64 kg

DRUGS (1)
  1. ALEVE [Suspect]
     Indication: DYSMENORRHOEA
     Dosage: AS USED: 660/440 MG  UNIT DOSE: 220 MG
     Route: 048
     Dates: start: 20070606

REACTIONS (4)
  - ABDOMINAL PAIN LOWER [None]
  - DYSMENORRHOEA [None]
  - FLATULENCE [None]
  - PAIN [None]
